FAERS Safety Report 16995718 (Version 2)
Quarter: 2019Q4

REPORT INFORMATION
  Report Type: Spontaneous
  Country: US (occurrence: US)
  Receive Date: 20191105
  Receipt Date: 20191226
  Transmission Date: 20200122
  Serious: No
  Sender: FDA-Public Use
  Company Number: US-TOLMAR, INC.-19US000657

PATIENT
  Age: 84 Year
  Sex: Male

DRUGS (2)
  1. ELIGARD [Suspect]
     Active Substance: LEUPROLIDE ACETATE
     Indication: PROSTATE CANCER
     Dosage: 22.5 MG, Q3MONTHS
     Route: 058
     Dates: start: 201809
  2. MEDICATION FOR BONE CANCER [Concomitant]
     Indication: BONE CANCER
     Route: 065

REACTIONS (2)
  - Needle issue [None]
  - Intercepted product preparation error [None]

NARRATIVE: CASE EVENT DATE: 20191004
